FAERS Safety Report 7164577-8 (Version None)
Quarter: 2010Q4

REPORT INFORMATION
  Report Type: 
  Country: None (occurrence: None)
  Receive Date: 20101215
  Receipt Date: 20101206
  Transmission Date: 20110411
  Serious: Yes (Life-Threatening, Hospitalization)
  Sender: FDA-Public Use
  Company Number: GXKR2010HU13816

PATIENT
  Age: 31 Year
  Sex: Female

DRUGS (3)
  1. FLUCONAZOLE [Suspect]
     Indication: SKIN DISCOMFORT
     Dosage: 1 CAPSULE /WEEK
     Route: 048
     Dates: start: 20100901, end: 20101029
  2. ALGOPYRIN [Concomitant]
     Indication: FEBRILE INFECTION
     Dosage: 1 TABLET IF NECESSARY (3 TABLETS ALTOGETHER)
     Dates: start: 20101025, end: 20101029
  3. RUBOPHEN [Concomitant]
     Indication: FEBRILE INFECTION
     Dosage: 1 TABLET IF NECESSARY (3 TABLETS ALTOGETHER
     Dates: start: 20101025, end: 20101029

REACTIONS (6)
  - FATIGUE [None]
  - LEUKOPENIA [None]
  - LIVER DISORDER [None]
  - MALAISE [None]
  - PAIN IN EXTREMITY [None]
  - PYREXIA [None]
